FAERS Safety Report 6358146-7 (Version None)
Quarter: 2009Q3

REPORT INFORMATION
  Report Type: 
  Country: None (occurrence: None)
  Receive Date: 20090911
  Receipt Date: 20090901
  Transmission Date: 20100115
  Serious: Yes (Life-Threatening, Hospitalization)
  Sender: FDA-Public Use
  Company Number: GXKR2009CN09841

PATIENT
  Age: 19 Year
  Sex: Male

DRUGS (1)
  1. TRAMADOL HCL [Suspect]
     Dosage: 5 EMPTY PACKAGES (12 TABLETS PER PACKAGE; TOTAL DOSAGE OF 6 G), ORAL
     Route: 048

REACTIONS (32)
  - ACIDOSIS [None]
  - ACUTE RESPIRATORY DISTRESS SYNDROME [None]
  - ALANINE AMINOTRANSFERASE INCREASED [None]
  - ASPARTATE AMINOTRANSFERASE INCREASED [None]
  - BLOOD CREATINE PHOSPHOKINASE INCREASED [None]
  - BLOOD CREATINE PHOSPHOKINASE MB INCREASED [None]
  - BODY TEMPERATURE DECREASED [None]
  - CARDIAC DISORDER [None]
  - CARDIOTOXICITY [None]
  - COMA [None]
  - CONVULSION [None]
  - CYANOSIS [None]
  - DRUG ABUSE [None]
  - DRUG TOXICITY [None]
  - ELECTROLYTE IMBALANCE [None]
  - EXTENSOR PLANTAR RESPONSE [None]
  - FAECAL INCONTINENCE [None]
  - HAEMOPERFUSION [None]
  - HEART RATE DECREASED [None]
  - HEPATIC FUNCTION ABNORMAL [None]
  - HYPERREFLEXIA [None]
  - HYPERTONIA [None]
  - MULTI-ORGAN FAILURE [None]
  - MYDRIASIS [None]
  - PNEUMONIA [None]
  - PULMONARY OEDEMA [None]
  - PUPILLARY REFLEX IMPAIRED [None]
  - RENAL DISORDER [None]
  - SHOCK [None]
  - SINUS TACHYCARDIA [None]
  - TROPONIN INCREASED [None]
  - URINARY INCONTINENCE [None]
